FAERS Safety Report 25417639 (Version 1)
Quarter: 2025Q2

REPORT INFORMATION
  Report Type: Report from Study
  Country: CA (occurrence: CA)
  Receive Date: 20250610
  Receipt Date: 20250610
  Transmission Date: 20250716
  Serious: Yes (Hospitalization)
  Sender: GILEAD
  Company Number: CA-GILEAD-2025-0716370

PATIENT
  Sex: Male

DRUGS (1)
  1. AZTREONAM LYSINE [Suspect]
     Active Substance: AZTREONAM LYSINE
     Indication: Cystic fibrosis
     Dosage: 75MG ( 1 VIAL) BY INHALATION 3 TIMES DAILY CONTINUOUSLY WITHOUT DRUG FREE INTERVAL AS DIRECT
     Route: 055

REACTIONS (2)
  - Gastrooesophageal reflux disease [Unknown]
  - Product use issue [Unknown]
